FAERS Safety Report 7518553-3 (Version None)
Quarter: 2011Q2

REPORT INFORMATION
  Report Type: 
  Country: None (occurrence: None)
  Receive Date: 20110601
  Receipt Date: 20110601
  Transmission Date: 20111010
  Serious: Yes (Death)
  Sender: FDA-Public Use
  Company Number: None

PATIENT
  Sex: Male
  Weight: 111.1313 kg

DRUGS (1)
  1. DILAUDID [Suspect]
     Indication: PAIN
     Dosage: 1 TO 2 TABLETS 4 TIMES A DAY PO
     Route: 048
     Dates: start: 20110103, end: 20110103

REACTIONS (1)
  - CARDIAC ARREST [None]
